FAERS Safety Report 5513828-1 (Version None)
Quarter: 2007Q4

REPORT INFORMATION
  Report Type: 
  Country: None (occurrence: None)
  Receive Date: 20071113
  Receipt Date: 20071106
  Transmission Date: 20080405
  Serious: Yes (Death)
  Sender: FDA-Public Use
  Company Number: US-ELI_LILLY_AND_COMPANY-US200711002194

PATIENT
  Age: 85 Year
  Sex: Female

DRUGS (1)
  1. ZYPREXA [Suspect]
     Dosage: UNK, UNK

REACTIONS (2)
  - DEATH [None]
  - EXTRAPYRAMIDAL DISORDER [None]
